FAERS Safety Report 9201239 (Version 2)
Quarter: 2013Q2

REPORT INFORMATION
  Report Type: Spontaneous
  Country: US (occurrence: US)
  Receive Date: 20130401
  Receipt Date: 20130424
  Transmission Date: 20140414
  Serious: Yes (Other)
  Sender: FDA-Public Use
  Company Number: PHEH2013US007245

PATIENT
  Age: 63 Year
  Sex: Female

DRUGS (2)
  1. DIOVAN [Suspect]
     Dates: start: 20060315
  2. XARELTO [Suspect]
     Indication: ANTICOAGULANT THERAPY
     Dosage: 10 MG

REACTIONS (8)
  - Post procedural infection [Not Recovered/Not Resolved]
  - Systemic lupus erythematosus [Not Recovered/Not Resolved]
  - Haematoma [Unknown]
  - Full blood count decreased [Unknown]
  - Blood potassium decreased [Unknown]
  - Blood sodium decreased [Unknown]
  - Blood folate decreased [Unknown]
  - Blood iron decreased [Unknown]
